FAERS Safety Report 12769749 (Version 1)
Quarter: 2016Q3

REPORT INFORMATION
  Report Type: Spontaneous
  Country: US (occurrence: US)
  Receive Date: 20160922
  Receipt Date: 20160922
  Transmission Date: 20161109
  Serious: No
  Sender: FDA-Public Use
  Company Number: US-ASTRAZENECA-2016SE96301

PATIENT
  Sex: Male

DRUGS (2)
  1. PULMICORT FLEXHALER [Suspect]
     Active Substance: BUDESONIDE
     Dosage: 90 MCG 165 MG, 2 PUFFS TWICE A DAY
     Route: 055
     Dates: start: 201510
  2. PULMICORT FLEXHALER [Suspect]
     Active Substance: BUDESONIDE
     Dosage: 90 MCG 165 MG, 2 PUFFS ONCE A DAY
     Route: 055

REACTIONS (6)
  - Burning sensation [Unknown]
  - Adverse event [Unknown]
  - Product quality issue [Unknown]
  - Drug dose omission [Unknown]
  - Intentional product misuse [Unknown]
  - Off label use [Unknown]
